FAERS Safety Report 7272375-X (Version None)
Quarter: 2011Q1

REPORT INFORMATION
  Report Type: 
  Country: None (occurrence: None)
  Receive Date: 20110131
  Receipt Date: 20110131
  Transmission Date: 20110831
  Serious: No
  Sender: FDA-Public Use
  Company Number: None

PATIENT
  Age: 36 Year
  Sex: Female
  Weight: 47.6277 kg

DRUGS (1)
  1. MIRACLE MINERAL BATHS [Suspect]
     Indication: ROUTINE HEALTH MAINTENANCE
     Dosage: ONE DROP ONE TIME PO
     Route: 048
     Dates: start: 20101228, end: 20101228

REACTIONS (2)
  - VESTIBULAR NEURONITIS [None]
  - OTOTOXICITY [None]
